FAERS Safety Report 6081228-4 (Version None)
Quarter: 2009Q1

REPORT INFORMATION
  Report Type: 
  Country: None (occurrence: None)
  Receive Date: 20090213
  Receipt Date: 20090206
  Transmission Date: 20090719
  Serious: Yes (Other)
  Sender: FDA-Public Use
  Company Number: OSCN-PR-0902S-0070

PATIENT
  Sex: Male

DRUGS (3)
  1. OMNISCAN [Suspect]
     Indication: DRUG USE FOR UNKNOWN INDICATION
     Dosage: SINGLE DOSE; SINGLE DOSE
     Dates: start: 20041130, end: 20041130
  2. OMNISCAN [Suspect]
     Indication: DRUG USE FOR UNKNOWN INDICATION
     Dosage: SINGLE DOSE; SINGLE DOSE
     Dates: start: 20061117, end: 20061117
  3. GADOLNIUM (UNSPECIFIED) [Concomitant]

REACTIONS (1)
  - NEPHROGENIC SYSTEMIC FIBROSIS [None]
